FAERS Safety Report 5382691-4 (Version None)
Quarter: 2007Q3

REPORT INFORMATION
  Report Type: 
  Country: None (occurrence: None)
  Receive Date: 20070710
  Receipt Date: 20070629
  Transmission Date: 20080115
  Serious: Yes (Other)
  Sender: FDA-Public Use
  Company Number: FR-JNJFOC-20070403211

PATIENT
  Sex: Male

DRUGS (4)
  1. RISPERDAL [Suspect]
     Indication: ABNORMAL BEHAVIOUR
     Route: 048
  2. MICROPAKINE [Concomitant]
     Indication: EPILEPSY
  3. LEDERFOLINE [Concomitant]
     Indication: SICKLE CELL ANAEMIA
  4. DEPAKENE [Concomitant]
     Indication: EPILEPSY

REACTIONS (2)
  - LEUKOPENIA [None]
  - NEUTROPENIA [None]
